FAERS Safety Report 5262736-2 (Version None)
Quarter: 2007Q1

REPORT INFORMATION
  Report Type: 
  Country: None (occurrence: None)
  Receive Date: 20070312
  Receipt Date: 20070302
  Transmission Date: 20070707
  Serious: Yes (Other)
  Sender: FDA-Public Use
  Company Number: 2007UW04249

PATIENT
  Sex: Female

DRUGS (1)
  1. ZOLADEX [Suspect]
     Indication: LEIOMYOMA
     Route: 058
     Dates: start: 20060101, end: 20070101

REACTIONS (1)
  - LEIOMYOMA [None]
